FAERS Safety Report 4841974-4 (Version None)
Quarter: 2005Q4

REPORT INFORMATION
  Report Type: 
  Country: None (occurrence: None)
  Receive Date: 20051130
  Receipt Date: 20051018
  Transmission Date: 20060501
  Serious: No
  Sender: FDA-Public Use
  Company Number: US-GLAXOSMITHKLINE-A0578680A

PATIENT
  Age: 38 Year
  Sex: Female

DRUGS (1)
  1. WELLBUTRIN [Suspect]
     Dosage: 150MG PER DAY
     Route: 048
     Dates: start: 20051001, end: 20051018

REACTIONS (3)
  - FEELING JITTERY [None]
  - PRURITUS [None]
  - RASH MACULO-PAPULAR [None]
